FAERS Safety Report 13260199 (Version 1)
Quarter: 2017Q1

REPORT INFORMATION
  Report Type: Report from Study
  Country: NL (occurrence: NL)
  Receive Date: 20170222
  Receipt Date: 20170222
  Transmission Date: 20170428
  Serious: Yes (Hospitalization, Other)
  Sender: FDA-Public Use
  Company Number: NL-ASTELLAS-2016US043008

PATIENT
  Age: 20 Year
  Sex: Female

DRUGS (7)
  1. LOCOID CRELO [Concomitant]
     Indication: DERMATITIS ATOPIC
     Route: 061
     Dates: start: 20141230
  2. TACROLIMUS. [Suspect]
     Active Substance: TACROLIMUS
     Dosage: UNK UNK, ONCE DAILY
     Route: 061
     Dates: start: 201311
  3. PENICILLIN                         /00000901/ [Concomitant]
     Active Substance: PENICILLIN G
     Indication: CYSTITIS NONINFECTIVE
     Route: 048
     Dates: start: 20160412
  4. TACROLIMUS. [Suspect]
     Active Substance: TACROLIMUS
     Indication: DERMATITIS ATOPIC
     Dosage: 0.1 %, ONCE DAILY
     Route: 061
     Dates: start: 200803
  5. PIMECROLIMUS [Concomitant]
     Active Substance: PIMECROLIMUS
     Indication: PRODUCT USED FOR UNKNOWN INDICATION
     Dosage: UNK UNK, UNKNOWN FREQ.
     Route: 065
     Dates: start: 20071210
  6. GEN-PAYNE [Concomitant]
     Active Substance: ACETAMINOPHEN\CODEINE\IBUPROFEN
     Indication: PAIN PROPHYLAXIS
     Dosage: 3X2, ONCE DAILY
     Route: 048
     Dates: start: 20160412
  7. LANSOPRAZOLE. [Concomitant]
     Active Substance: LANSOPRAZOLE
     Indication: GASTROINTESTINAL DISORDER
     Dosage: UNK UNK, TWICE DAILY
     Route: 048
     Dates: start: 20160412

REACTIONS (7)
  - Irritable bowel syndrome [Unknown]
  - Cystitis noninfective [Unknown]
  - Food poisoning [Unknown]
  - Appendicitis [Recovered/Resolved]
  - Off label use [Unknown]
  - Dehydration [Recovered/Resolved]
  - Asthenia [Recovered/Resolved]

NARRATIVE: CASE EVENT DATE: 20160420
